FAERS Safety Report 26180935 (Version 1)
Quarter: 2025Q4

REPORT INFORMATION
  Report Type: Spontaneous
  Country: JP (occurrence: JP)
  Receive Date: 20251221
  Receipt Date: 20251221
  Transmission Date: 20260118
  Serious: Yes (Death, Life-Threatening, Other)
  Sender: Phathom Pharmaceuticals
  Company Number: JP-PHATHOM PHARMACEUTICALS INC.-2025PHT03635

PATIENT
  Age: 75 Year
  Sex: Male
  Weight: 55 kg

DRUGS (6)
  1. VONOPRAZAN FUMARATE [Suspect]
     Active Substance: VONOPRAZAN FUMARATE
     Indication: Helicobacter infection
     Dosage: 20 MG, 2X/DAY
     Route: 048
     Dates: start: 20160427, end: 20160503
  2. AMOXICILLIN [Suspect]
     Active Substance: AMOXICILLIN
     Indication: Helicobacter infection
     Dosage: 750 MG, 2X/DAY
     Route: 048
     Dates: start: 20160427, end: 20160503
  3. SITAFLOXACIN [Suspect]
     Active Substance: SITAFLOXACIN
     Indication: Helicobacter infection
     Dosage: 100 MG, 2X/DAY
     Route: 048
     Dates: start: 20160427, end: 20160503
  4. DIETARY SUPPLEMENT\PROBIOTICS [Concomitant]
     Active Substance: DIETARY SUPPLEMENT\PROBIOTICS NOS
     Dosage: UNK
     Dates: start: 20160427, end: 20160503
  5. ROSUVASTATIN CALCIUM [Concomitant]
     Active Substance: ROSUVASTATIN CALCIUM
     Indication: Dyslipidaemia
  6. BENZBROMARONE [Concomitant]
     Active Substance: BENZBROMARONE
     Indication: Hyperuricaemia

REACTIONS (7)
  - Clostridium colitis [Unknown]
  - Multiple organ dysfunction syndrome [Fatal]
  - Septic shock [Unknown]
  - Cardio-respiratory arrest [Unknown]
  - Lactic acidosis [Fatal]
  - Gastrointestinal necrosis [Unknown]
  - Hyperkalaemia [Unknown]

NARRATIVE: CASE EVENT DATE: 20150401
